FAERS Safety Report 16278982 (Version 1)
Quarter: 2019Q2

REPORT INFORMATION
  Report Type: Spontaneous
  Country: GB (occurrence: GB)
  Receive Date: 20190506
  Receipt Date: 20190506
  Transmission Date: 20190711
  Serious: Yes (Other)
  Sender: FDA-Public Use
  Company Number: GB-ALLERGAN-1918892US

PATIENT
  Sex: Female

DRUGS (1)
  1. CEFTAZIDIME;AVIBACTAM - BP [Suspect]
     Active Substance: AVIBACTAM SODIUM\CEFTAZIDIME
     Indication: INFECTIVE EXACERBATION OF BRONCHIECTASIS
     Dosage: 7.5 G, 1X/DAY (3 DOSE FORM, 2 GRAMS/ 0.5 GRAMS)
     Route: 042

REACTIONS (6)
  - Wheezing [Unknown]
  - Incorrect drug administration rate [Unknown]
  - Tachycardia [Unknown]
  - Off label use [Unknown]
  - Malaise [Unknown]
  - Dyspnoea [Unknown]

NARRATIVE: CASE EVENT DATE: 20181110
